FAERS Safety Report 4664773-5 (Version None)
Quarter: 2005Q2

REPORT INFORMATION
  Report Type: 
  Country: None (occurrence: None)
  Receive Date: 20050516
  Receipt Date: 20050511
  Transmission Date: 20051028
  Serious: Yes (Hospitalization, Other)
  Sender: FDA-Public Use
  Company Number: MED000122

PATIENT
  Age: 61 Year
  Sex: Male
  Weight: 51 kg

DRUGS (1)
  1. SORBITOL [Suspect]
     Indication: TRANSURETHRAL PROSTATECTOMY
     Dosage: 60 L;
     Route: 066
     Dates: start: 20030131, end: 20030131

REACTIONS (10)
  - BLOOD PRESSURE DECREASED [None]
  - BLOOD SODIUM DECREASED [None]
  - BRADYCARDIA [None]
  - DEPRESSED LEVEL OF CONSCIOUSNESS [None]
  - HAEMOGLOBIN DECREASED [None]
  - HYPONATRAEMIA [None]
  - HYPOXIA [None]
  - NODAL RHYTHM [None]
  - PULMONARY OEDEMA [None]
  - RENAL IMPAIRMENT [None]
